FAERS Safety Report 6700202-5 (Version None)
Quarter: 2010Q2

REPORT INFORMATION
  Report Type: 
  Country: None (occurrence: None)
  Receive Date: 20100428
  Receipt Date: 20100419
  Transmission Date: 20101027
  Serious: Yes (Other)
  Sender: FDA-Public Use
  Company Number: CA-PFIZER INC-2010049095

PATIENT
  Age: 28 Year
  Sex: Female

DRUGS (1)
  1. DEPO-PROVERA [Suspect]
     Indication: CONTRACEPTION
     Dosage: UNK
     Dates: start: 20091229

REACTIONS (10)
  - BACK PAIN [None]
  - DIZZINESS [None]
  - DYSPHAGIA [None]
  - EYE PAIN [None]
  - HEADACHE [None]
  - HOT FLUSH [None]
  - INCREASED VISCOSITY OF BRONCHIAL SECRETION [None]
  - MENOMETRORRHAGIA [None]
  - NAUSEA [None]
  - PELVIC INFLAMMATORY DISEASE [None]
